FAERS Safety Report 9383906 (Version 3)
Quarter: 2013Q4

REPORT INFORMATION
  Report Type: Spontaneous
  Country: GB (occurrence: GB)
  Receive Date: 20130705
  Receipt Date: 20131002
  Transmission Date: 20140711
  Serious: Yes (Other)
  Sender: FDA-Public Use
  Company Number: GB-JNJFOC-20130700623

PATIENT
  Sex: Male
  Weight: 128 kg

DRUGS (4)
  1. NICOTINE PATCH [Concomitant]
     Indication: PRODUCT USED FOR UNKNOWN INDICATION
     Route: 065
     Dates: start: 20100302, end: 20100316
  2. NICORETTE NASAL SPRAY 10MG [Suspect]
     Indication: SMOKING CESSATION THERAPY
     Dosage: 5 PER WEEK
     Route: 045
     Dates: start: 20070911, end: 20100302
  3. NICOTINE PATCH [Concomitant]
     Indication: PRODUCT USED FOR UNKNOWN INDICATION
     Dosage: 5 PER WEEK
     Route: 065
     Dates: start: 20100112, end: 20100126
  4. NICOTINE PATCH [Concomitant]
     Indication: PRODUCT USED FOR UNKNOWN INDICATION
     Route: 065
     Dates: start: 20100126, end: 20100302

REACTIONS (3)
  - Nicotine dependence [Not Recovered/Not Resolved]
  - Intentional drug misuse [Unknown]
  - Wrong technique in drug usage process [Unknown]
